FAERS Safety Report 19103207 (Version 2)
Quarter: 2021Q3

REPORT INFORMATION
  Report Type: Report from Study
  Country: RU (occurrence: RU)
  Receive Date: 20210407
  Receipt Date: 20210707
  Transmission Date: 20211014
  Serious: Yes (Other)
  Sender: FDA-Public Use
  Company Number: RU-INCYTE CORPORATION-2020IN013570

PATIENT

DRUGS (8)
  1. ERYTHROPOIETIN [Concomitant]
     Active Substance: ERYTHROPOIETIN
     Indication: PRODUCT USED FOR UNKNOWN INDICATION
     Dosage: UNK, QW (10,000 ONCE A WEEK)
     Route: 065
  2. INTERFERON ALFA 2B [Concomitant]
     Active Substance: INTERFERON ALFA-2B
     Dosage: 3000000 IU, Q3W
     Route: 058
     Dates: start: 201804
  3. JAKAVI [Suspect]
     Active Substance: RUXOLITINIB
     Indication: MYELOFIBROSIS
     Dosage: 30 MG, BID
     Route: 048
     Dates: start: 20190308
  4. INTERFERON ALFA 2B [Concomitant]
     Active Substance: INTERFERON ALFA-2B
     Indication: PRODUCT USED FOR UNKNOWN INDICATION
     Dosage: 3000000 IU, Q3W
     Route: 058
     Dates: start: 2006
  5. HYDROXYCARBAMIDE [Concomitant]
     Active Substance: HYDROXYUREA
     Indication: PRODUCT USED FOR UNKNOWN INDICATION
     Dosage: UNK
     Route: 065
     Dates: start: 2005
  6. INTERFERON [Concomitant]
     Active Substance: INTERFERON
     Indication: PRODUCT USED FOR UNKNOWN INDICATION
     Dosage: UNK
     Route: 065
     Dates: start: 200509
  7. THYROXIN [Concomitant]
     Active Substance: LEVOTHYROXINE
     Indication: PRODUCT USED FOR UNKNOWN INDICATION
     Dosage: 62 UG
     Route: 065
  8. INTERFERON ALFA 2B [Concomitant]
     Active Substance: INTERFERON ALFA-2B
     Dosage: 3000000 IU, Q3W
     Route: 058
     Dates: start: 20180718

REACTIONS (5)
  - Haemoglobin increased [Unknown]
  - Product supply issue [Unknown]
  - Respiratory tract infection viral [Unknown]
  - Pneumonia [Unknown]
  - Anaemia [Recovered/Resolved]

NARRATIVE: CASE EVENT DATE: 201908
